FAERS Safety Report 4476834-4 (Version None)
Quarter: 2004Q4

REPORT INFORMATION
  Report Type: 
  Country: None (occurrence: None)
  Receive Date: 20041013
  Receipt Date: 20040924
  Transmission Date: 20050328
  Serious: Yes (Other)
  Sender: FDA-Public Use
  Company Number: USA040979186

PATIENT
  Sex: Male

DRUGS (1)
  1. HUMULIN N [Suspect]
     Dosage: 15 U

REACTIONS (4)
  - ARTHRITIS [None]
  - DEVICE FAILURE [None]
  - PHARMACEUTICAL PRODUCT COMPLAINT [None]
  - RETINAL HAEMORRHAGE [None]
